FAERS Safety Report 6073264-9 (Version None)
Quarter: 2009Q1

REPORT INFORMATION
  Report Type: 
  Country: None (occurrence: None)
  Receive Date: 20090205
  Receipt Date: 20090123
  Transmission Date: 20090719
  Serious: Yes (Hospitalization)
  Sender: FDA-Public Use
  Company Number: DSU-2009-00238

PATIENT
  Age: 77 Year
  Sex: Female

DRUGS (2)
  1. OLMESARTAN MEDOXOMIL [Suspect]
     Indication: BLOOD PRESSURE ABNORMAL
     Dosage: 20 MG (20 MG, QD), PER ORAL
     Route: 048
     Dates: start: 20080815
  2. ATORVASTATIN (ATORVASTATIN) (20 MILLIGRAM, TABLET) (ATORVASTATIN) [Concomitant]

REACTIONS (1)
  - COLON NEOPLASM [None]
